FAERS Safety Report 15596183 (Version 2)
Quarter: 2019Q3

REPORT INFORMATION
  Report Type: Spontaneous
  Country: IT (occurrence: IT)
  Receive Date: 20181108
  Receipt Date: 20190808
  Transmission Date: 20191004
  Serious: Yes (Hospitalization)
  Sender: FDA-Public Use
  Company Number: IT-PFIZER INC-2018455448

PATIENT
  Age: 5 Year
  Sex: Male
  Weight: 16 kg

DRUGS (7)
  1. RIVOTRIL [Suspect]
     Active Substance: CLONAZEPAM
     Indication: EPILEPSY
     Dosage: 9 GTT, 1X/DAY
     Route: 048
     Dates: start: 20180101, end: 20181006
  2. UBIDECARENONE [Concomitant]
     Active Substance: UBIDECARENONE
     Dosage: 150 MG, 1X/DAY
     Route: 048
  3. THIAMINE. [Concomitant]
     Active Substance: THIAMINE
     Dosage: 150 MG, 1X/DAY
     Route: 048
  4. URSULTEC [Concomitant]
     Dosage: 6 ML, 1X/DAY
     Route: 048
  5. ZARONTIN [Suspect]
     Active Substance: ETHOSUXIMIDE
     Indication: EPILEPSY
     Dosage: 5 ML, 1X/DAY
     Route: 048
     Dates: start: 20180401, end: 20181006
  6. CARNITENE [CARNITINE HYDROCHLORIDE] [Concomitant]
     Dosage: 300 MG, 1X/DAY
     Route: 048
  7. DIBASE [Concomitant]
     Active Substance: CHOLECALCIFEROL
     Dosage: 2 GTT, 1X/DAY
     Route: 048

REACTIONS (2)
  - Generalised tonic-clonic seizure [Unknown]
  - Drug ineffective [Unknown]

NARRATIVE: CASE EVENT DATE: 20181006
